FAERS Safety Report 17143063 (Version 7)
Quarter: 2020Q3

REPORT INFORMATION
  Report Type: Report from Study
  Country: US (occurrence: US)
  Receive Date: 20191211
  Receipt Date: 20200717
  Transmission Date: 20201102
  Serious: Yes (Hospitalization, Other)
  Sender: FDA-Public Use
  Company Number: NVSC2019US061277

PATIENT
  Age: 69 Year
  Sex: Male
  Weight: 36.74 kg

DRUGS (2)
  1. COSENTYX [Suspect]
     Active Substance: SECUKINUMAB
     Indication: PSORIASIS
     Dosage: 300 MG, QMO
     Route: 065
     Dates: start: 20180728, end: 20190520
  2. ASPIRIN. [Concomitant]
     Active Substance: ASPIRIN
     Indication: PRODUCT USED FOR UNKNOWN INDICATION
     Dosage: UNK
     Route: 065

REACTIONS (12)
  - Fatigue [Recovered/Resolved]
  - Pulmonary fibrosis [Recovered/Resolved]
  - Swelling [Unknown]
  - Weight decreased [Recovered/Resolved]
  - Gastrointestinal disorder [Recovered/Resolved]
  - Palpitations [Unknown]
  - Atrial fibrillation [Recovered/Resolved]
  - Left ventricular dysfunction [Recovered/Resolved]
  - Pleurisy [Unknown]
  - Thrombosis [Unknown]
  - Spinal ligament ossification [Unknown]
  - Hypertension [Unknown]

NARRATIVE: CASE EVENT DATE: 2019
